FAERS Safety Report 11088705 (Version 5)
Quarter: 2016Q4

REPORT INFORMATION
  Report Type: Report from Study
  Country: DE (occurrence: DE)
  Receive Date: 20150504
  Receipt Date: 20161222
  Transmission Date: 20170206
  Serious: Yes (Other)
  Sender: FDA-Public Use
  Company Number: DE-GILEAD-2015-0148611

PATIENT
  Age: 34 Year
  Sex: Female
  Weight: 90 kg

DRUGS (13)
  1. ADCIRCA [Suspect]
     Active Substance: TADALAFIL
     Indication: PULMONARY HYPERTENSION
     Dosage: 20 MG, QD
     Route: 048
     Dates: start: 20140521
  2. CETIRIZIN [Concomitant]
     Active Substance: CETIRIZINE HYDROCHLORIDE
     Indication: CHRONIC HEPATITIS C
     Dosage: 10 MG, UNK
     Route: 065
     Dates: start: 20120820
  3. LEDIPASVIR/SOFOSBUVIR [Suspect]
     Active Substance: LEDIPASVIR\SOFOSBUVIR
     Indication: CHRONIC HEPATITIS C
     Dosage: 1 DF, QD
     Route: 048
     Dates: start: 20150210, end: 20150505
  4. QUANTALAN [Concomitant]
     Active Substance: CHOLESTYRAMINE
     Indication: PRODUCT USED FOR UNKNOWN INDICATION
     Dosage: UNK
     Route: 065
  5. DEKRISTOL [Concomitant]
     Active Substance: CHOLECALCIFEROL
     Indication: PRODUCT USED FOR UNKNOWN INDICATION
     Dosage: UNK
     Route: 065
     Dates: start: 20150303, end: 20150811
  6. LEVOMETHADONE [Suspect]
     Active Substance: LEVOMETHADONE
     Indication: DRUG DEPENDENCE
     Dosage: 50 MG, QD
     Route: 048
     Dates: start: 20100407
  7. KALINOR-RETARD P [Concomitant]
     Indication: CARDIOVASCULAR DISORDER
     Dosage: UNK
     Route: 065
     Dates: start: 20150303
  8. SPIRONOLACTON [Suspect]
     Active Substance: SPIRONOLACTONE
     Indication: HEPATIC CIRRHOSIS
     Dosage: 125 MG, QD
     Route: 048
     Dates: start: 20100101
  9. TORASEMID [Suspect]
     Active Substance: TORSEMIDE
     Indication: HEPATIC CIRRHOSIS
     Dosage: 5 MG, QD
     Route: 048
     Dates: start: 20131230
  10. METOPROLOL. [Suspect]
     Active Substance: METOPROLOL
     Indication: TACHYCARDIA
     Dosage: 23.75 MG, QD
     Route: 048
     Dates: start: 20150414, end: 20150417
  11. MERICOMB [Suspect]
     Active Substance: ESTRADIOL VALERATE\NORETHINDRONE
     Indication: HORMONE REPLACEMENT THERAPY
     Dosage: 1 MG, QD
     Route: 048
     Dates: start: 20141124
  12. METOPROLOL. [Suspect]
     Active Substance: METOPROLOL
     Dosage: 12 MG, UNK
     Route: 048
     Dates: start: 20150418
  13. URSOFALK [Concomitant]
     Active Substance: URSODIOL
     Indication: CHRONIC HEPATITIS C
     Dosage: 500 MG, UNK
     Route: 065

REACTIONS (9)
  - Disturbance in attention [Unknown]
  - Wolff-Parkinson-White syndrome [Recovered/Resolved]
  - Insomnia [Unknown]
  - Gastritis [Recovered/Resolved]
  - Supraventricular tachycardia [Recovered/Resolved]
  - Dyspnoea [Recovered/Resolved]
  - Fatigue [Unknown]
  - Electrocardiogram QT prolonged [Recovered/Resolved]
  - Depressed mood [Unknown]

NARRATIVE: CASE EVENT DATE: 20150413
